FAERS Safety Report 12903146 (Version 1)
Quarter: 2016Q4

REPORT INFORMATION
  Report Type: Spontaneous
  Country: JP (occurrence: JP)
  Receive Date: 20161102
  Receipt Date: 20161102
  Transmission Date: 20170207
  Serious: Yes (Hospitalization)
  Sender: FDA-Public Use
  Company Number: JP-PFIZER INC-2016507333

PATIENT
  Age: 40 Year
  Sex: Male

DRUGS (4)
  1. NEXIUM [Suspect]
     Active Substance: ESOMEPRAZOLE MAGNESIUM
     Dosage: 1 DF, ONCE DAILY, MORNING
     Route: 065
     Dates: start: 20160917, end: 20160921
  2. CALONAL [Suspect]
     Active Substance: ACETAMINOPHEN
     Dosage: UNK UNK, AS NEEDED
     Route: 065
  3. CEFAZOLIN [Suspect]
     Active Substance: CEFAZOLIN
     Dosage: 1 G, 2X/DAY
     Route: 041
     Dates: start: 20160915, end: 20160917
  4. CELECOX [Suspect]
     Active Substance: CELECOXIB
     Dosage: 100 MG, TWICE DAILY, MORNING AND AFTERNOON
     Route: 048
     Dates: start: 20160915, end: 20160921

REACTIONS (1)
  - Hepatic function abnormal [Recovering/Resolving]

NARRATIVE: CASE EVENT DATE: 20160924
